FAERS Safety Report 11233871 (Version 4)
Quarter: 2015Q3

REPORT INFORMATION
  Report Type: Spontaneous
  Country: US (occurrence: US)
  Receive Date: 20150702
  Receipt Date: 20150730
  Transmission Date: 20151125
  Serious: No
  Sender: FDA-Public Use
  Company Number: US-AMGEN-USASP2015064143

PATIENT
  Age: 58 Year
  Sex: Female

DRUGS (1)
  1. ENBREL [Suspect]
     Active Substance: ETANERCEPT
     Indication: RHEUMATOID ARTHRITIS
     Dosage: 50MG, ONCE WEEKLY
     Route: 065
     Dates: start: 20140101

REACTIONS (9)
  - Pain in extremity [Unknown]
  - Device issue [Not Recovered/Not Resolved]
  - Arthropathy [Unknown]
  - Peripheral swelling [Unknown]
  - Grip strength decreased [Unknown]
  - Drug dose omission [Not Recovered/Not Resolved]
  - Limb discomfort [Unknown]
  - Musculoskeletal discomfort [Unknown]
  - Injection site pain [Not Recovered/Not Resolved]

NARRATIVE: CASE EVENT DATE: 20140101
